FAERS Safety Report 11782749 (Version 3)
Quarter: 2017Q3

REPORT INFORMATION
  Report Type: Spontaneous
  Country: US (occurrence: US)
  Receive Date: 20151127
  Receipt Date: 20170914
  Transmission Date: 20171127
  Serious: No
  Sender: FDA-Public Use
  Company Number: US-PFIZER INC-2015169220

PATIENT
  Age: 68 Year
  Sex: Female
  Weight: 62.13 kg

DRUGS (5)
  1. LYRICA [Suspect]
     Active Substance: PREGABALIN
     Indication: POLYNEUROPATHY
     Dosage: 300 MG, 2X/DAY (4 TABLETS OF 75 MG)
  2. VALIUM [Concomitant]
     Active Substance: DIAZEPAM
     Indication: MENTAL DISORDER
     Dosage: 10 MG, AS NEEDED (THREE TIMES PER DAY)
     Route: 048
  3. LYRICA [Suspect]
     Active Substance: PREGABALIN
     Indication: FIBROMYALGIA
     Dosage: 300 MG, 2X/DAY
     Route: 048
  4. LYRICA [Suspect]
     Active Substance: PREGABALIN
     Indication: NEUROPATHY PERIPHERAL
  5. ASPIRIN. [Concomitant]
     Active Substance: ASPIRIN
     Indication: SUPPLEMENTATION THERAPY
     Dosage: 81 MG, UNK

REACTIONS (10)
  - Asthenia [Not Recovered/Not Resolved]
  - Gait disturbance [Not Recovered/Not Resolved]
  - Pain [Not Recovered/Not Resolved]
  - Weight fluctuation [Unknown]
  - Thyroid disorder [Unknown]
  - Tremor [Not Recovered/Not Resolved]
  - Visual impairment [Unknown]
  - Malaise [Unknown]
  - Disease recurrence [Not Recovered/Not Resolved]
  - Expired product administered [Unknown]
